FAERS Safety Report 21403607 (Version 1)
Quarter: 2022Q4

REPORT INFORMATION
  Report Type: Spontaneous
  Country: DE (occurrence: None)
  Receive Date: 20221003
  Receipt Date: 20221003
  Transmission Date: 20230113
  Serious: Yes (Hospitalization, Other)
  Sender: FDA-Public Use
  Company Number: 2022A334013

PATIENT
  Age: 57 Year
  Sex: Male

DRUGS (13)
  1. FASENRA [Suspect]
     Active Substance: BENRALIZUMAB
     Indication: Asthma
     Route: 058
     Dates: start: 20180608
  2. FASENRA [Suspect]
     Active Substance: BENRALIZUMAB
     Indication: Asthma
     Route: 058
     Dates: start: 20180702
  3. FASENRA [Suspect]
     Active Substance: BENRALIZUMAB
     Indication: Asthma
     Route: 058
     Dates: start: 20180730
  4. FASENRA [Suspect]
     Active Substance: BENRALIZUMAB
     Indication: Asthma
     Route: 058
     Dates: start: 20180924
  5. FASENRA [Suspect]
     Active Substance: BENRALIZUMAB
     Indication: Asthma
     Route: 058
     Dates: start: 20181120
  6. FASENRA [Suspect]
     Active Substance: BENRALIZUMAB
     Indication: Asthma
     Route: 058
     Dates: start: 20190109
  7. PULMICORT TURBUHALER [Suspect]
     Active Substance: BUDESONIDE
     Indication: Asthma
     Dosage: TWO TIMES A DAY
     Route: 055
     Dates: start: 201809
  8. ALLERGOSPASMIN [Concomitant]
     Dosage: 2 STROKES IF REQUIRED
  9. SPIRIVA RESPIMAT [Concomitant]
     Active Substance: TIOTROPIUM BROMIDE
  10. FOSTER [Concomitant]
     Active Substance: BECLOMETHASONE\FORMOTEROL
     Dosage: 200/6 ?G 120 STROKES, FOUR TIMES A DAY
  11. SALBUTAMOL RATIOPHARM [Concomitant]
     Dosage: N 1X200 STROKES DA 1
  12. XARELTO [Concomitant]
     Active Substance: RIVAROXABAN
     Indication: Venous thrombosis limb
  13. MEPOLIZUMAB [Concomitant]
     Active Substance: MEPOLIZUMAB
     Dates: start: 201905

REACTIONS (11)
  - Chronic obstructive pulmonary disease [Unknown]
  - Respiratory distress [Unknown]
  - Chest pain [Unknown]
  - Lung disorder [Unknown]
  - Restrictive pulmonary disease [Unknown]
  - General physical health deterioration [Unknown]
  - Nasal congestion [Unknown]
  - Asthma [Unknown]
  - Dyspnoea [Unknown]
  - Obstructive airways disorder [Unknown]
  - Drug ineffective [Unknown]

NARRATIVE: CASE EVENT DATE: 20181008
